FAERS Safety Report 21326345 (Version 3)
Quarter: 2022Q3

REPORT INFORMATION
  Report Type: Report from Study
  Country: US (occurrence: US)
  Receive Date: 20220913
  Receipt Date: 20220926
  Transmission Date: 20221027
  Serious: Yes (Other)
  Sender: FDA-Public Use
  Company Number: US-NOVARTISTESTPH-NVSC2022US206149

PATIENT
  Age: 68 Year
  Sex: Male

DRUGS (2)
  1. TASIGNA [Suspect]
     Active Substance: NILOTINIB
     Indication: Acute lymphocytic leukaemia
     Dosage: 300 MG, BID
     Route: 048
     Dates: start: 20190731
  2. TASIGNA [Suspect]
     Active Substance: NILOTINIB
     Dosage: 150 MG X 2, BID
     Route: 065

REACTIONS (4)
  - Neuropathy peripheral [Unknown]
  - Product use in unapproved indication [Unknown]
  - Balance disorder [Unknown]
  - Ear discomfort [Unknown]

NARRATIVE: CASE EVENT DATE: 20220116
